FAERS Safety Report 6189089-X (Version None)
Quarter: 2009Q2

REPORT INFORMATION
  Report Type: 
  Country: None (occurrence: None)
  Receive Date: 20090512
  Receipt Date: 20090428
  Transmission Date: 20091009
  Serious: No
  Sender: FDA-Public Use
  Company Number: 005457

PATIENT
  Age: 87 Year
  Sex: Female

DRUGS (3)
  1. PLETAL [Suspect]
     Indication: PERIPHERAL ARTERIAL OCCLUSIVE DISEASE
     Dosage: 100 MG, QD, ORAL
     Route: 048
     Dates: start: 20081222, end: 20090113
  2. VALSARTAN (VALSAIRTAN) [Concomitant]
  3. MOXONIDINE (MOXONIDINE) [Concomitant]

REACTIONS (3)
  - HEART RATE INCREASED [None]
  - HYPERTENSIVE CRISIS [None]
  - PALPITATIONS [None]
